FAERS Safety Report 11198653 (Version 1)
Quarter: 2015Q2

REPORT INFORMATION
  Report Type: Spontaneous
  Country: US (occurrence: None)
  Receive Date: 20150603
  Receipt Date: 20150603
  Transmission Date: 20150821
  Serious: No
  Sender: FDA-Public Use
  Company Number: US-MDCO-15-00225

PATIENT
  Age: 33 Year
  Sex: Female

DRUGS (4)
  1. ORBACTIV [Suspect]
     Active Substance: ORITAVANCIN
     Indication: CELLULITIS STAPHYLOCOCCAL
     Route: 041
     Dates: start: 201504
  2. KEFLEX [Concomitant]
     Active Substance: CEPHALEXIN
  3. BACTRIM [Concomitant]
     Active Substance: SULFAMETHOXAZOLE\TRIMETHOPRIM
  4. ORBACTIV [Suspect]
     Active Substance: ORITAVANCIN
     Indication: ABSCESS
     Route: 041
     Dates: start: 201504

REACTIONS (2)
  - Dysphagia [None]
  - Flushing [None]

NARRATIVE: CASE EVENT DATE: 201504
